FAERS Safety Report 8669271 (Version 2)
Quarter: 2012Q4

REPORT INFORMATION
  Report Type: Spontaneous
  Country: DE (occurrence: None)
  Receive Date: 20120702
  Receipt Date: 20121003
  Transmission Date: 20130627
  Serious: Yes (Other)
  Sender: FDA-Public Use
  Company Number: 2012GR0209

PATIENT
  Age: 36 Year
  Sex: Female
  Weight: 100 kg

DRUGS (6)
  1. KINERET (ANAKINRA), NOT AVAILABLE [Suspect]
     Indication: PERICARDITIS
     Dosage: 100 MG(100 MG, 1 IN 1 D)
     Dates: start: 20090911, end: 20091019
  2. KINERET (ANAKINRA), NOT AVAILABLE [Suspect]
     Indication: DISEASE RECURRENCE
     Dosage: 100 MG(100 MG, 1 IN 1 D)
     Dates: start: 20090911, end: 20091019
  3. STEOIRDS (STEROIDS) [Concomitant]
  4. IBUPROFEN (IBUPROFEN) [Concomitant]
  5. COLCHICINE [Concomitant]
  6. METHYLPREDNISOLONE (METHYLPREDNISOLONE) [Concomitant]

REACTIONS (5)
  - Aspartate aminotransferase increased [None]
  - Alanine aminotransferase increased [None]
  - Hepatic steatosis [None]
  - Blood alkaline phosphatase increased [None]
  - Blood lactate dehydrogenase increased [None]
